FAERS Safety Report 7556501-0 (Version None)
Quarter: 2011Q2

REPORT INFORMATION
  Report Type: 
  Country: None (occurrence: None)
  Receive Date: 20110615
  Receipt Date: 20110615
  Transmission Date: 20111010
  Serious: Yes (Hospitalization)
  Sender: FDA-Public Use
  Company Number: None

PATIENT
  Age: 47 Year
  Sex: Female
  Weight: 70.3075 kg

DRUGS (1)
  1. DICLOFENAC SODIUM [Suspect]
     Indication: FALL
     Dosage: 1 TABLET TWICE
     Dates: start: 20110302, end: 20110303

REACTIONS (3)
  - DRUG INTERACTION [None]
  - COLITIS [None]
  - RECTAL HAEMORRHAGE [None]
